FAERS Safety Report 17822786 (Version 1)
Quarter: 2020Q2

REPORT INFORMATION
  Report Type: Spontaneous
  Country: US (occurrence: US)
  Receive Date: 20200526
  Receipt Date: 20200526
  Transmission Date: 20200714
  Serious: No
  Sender: FDA-Public Use
  Company Number: US-SHIRE-US202017311

PATIENT
  Sex: Male
  Weight: 93.88 kg

DRUGS (4)
  1. BENADRYL [Concomitant]
     Active Substance: DIPHENHYDRAMINE HYDROCHLORIDE
     Indication: PRODUCT USED FOR UNKNOWN INDICATION
  2. GAMMAGARD LIQUID [Suspect]
     Active Substance: HUMAN IMMUNOGLOBULIN G
     Indication: IMMUNODEFICIENCY
     Dosage: UNK UNK, EVERY 4 WK
     Route: 042
     Dates: start: 201803
  3. GAMMAGARD LIQUID [Suspect]
     Active Substance: HUMAN IMMUNOGLOBULIN G
     Indication: LEUKAEMIA
     Dosage: 45 GRAM, EVERY 4 WK
     Route: 042
     Dates: start: 20200520
  4. TYLENOL [Concomitant]
     Active Substance: ACETAMINOPHEN
     Indication: PRODUCT USED FOR UNKNOWN INDICATION

REACTIONS (6)
  - Inappropriate schedule of product administration [Unknown]
  - Exposure to SARS-CoV-2 [Unknown]
  - Vein disorder [Unknown]
  - Condition aggravated [Unknown]
  - Headache [Unknown]
  - Chronic sinusitis [Unknown]
